FAERS Safety Report 7506605-3 (Version None)
Quarter: 2011Q2

REPORT INFORMATION
  Report Type: 
  Country: None (occurrence: None)
  Receive Date: 20110526
  Receipt Date: 20110519
  Transmission Date: 20111010
  Serious: Yes (Hospitalization)
  Sender: FDA-Public Use
  Company Number: PHHO2011US04801

PATIENT
  Sex: Female
  Weight: 104 kg

DRUGS (4)
  1. AFINITOR [Suspect]
     Dosage: UNK
     Route: 048
     Dates: start: 20110318
  2. AFINITOR [Suspect]
     Indication: GLIOBLASTOMA
     Dosage: UNK
     Route: 048
     Dates: start: 20101020, end: 20110310
  3. TEMOZOLOMIDE [Concomitant]
     Indication: GLIOBLASTOMA
     Dosage: UNK
     Route: 042
     Dates: start: 20101020
  4. RADIATION [Concomitant]
     Indication: GLIOBLASTOMA

REACTIONS (6)
  - THROMBOCYTOPENIA [None]
  - PULMONARY EMBOLISM [None]
  - FATIGUE [None]
  - DYSPNOEA [None]
  - DIZZINESS POSTURAL [None]
  - SINUS TACHYCARDIA [None]
